FAERS Safety Report 5099750-6 (Version None)
Quarter: 2006Q3

REPORT INFORMATION
  Report Type: 
  Country: None (occurrence: None)
  Receive Date: 20060908
  Receipt Date: 20060830
  Transmission Date: 20061208
  Serious: Yes (Other)
  Sender: FDA-Public Use
  Company Number: US-ROCHE-461737

PATIENT
  Sex: Female

DRUGS (3)
  1. ACCUTANE [Suspect]
     Dosage: STARTED AT 20 MG TWICE DAILY AND LATER DOSE INCREASED TO 30 MG TWICE DAILY.
     Dates: start: 19980321, end: 19980815
  2. ACCUTANE [Suspect]
     Dates: start: 19990420, end: 19990520
  3. UNSPECIFIED DRUG [Concomitant]

REACTIONS (4)
  - DRUG EXPOSURE DURING PREGNANCY [None]
  - NO ADVERSE EFFECT [None]
  - NORMAL NEWBORN [None]
  - PREGNANCY [None]
